FAERS Safety Report 8621663-0 (Version None)
Quarter: 2012Q3

REPORT INFORMATION
  Report Type: 
  Country: None (occurrence: None)
  Receive Date: 20120821
  Receipt Date: 20120821
  Transmission Date: 20120928
  Serious: No
  Sender: FDA-Public Use
  Company Number: None

PATIENT
  Sex: Female

DRUGS (1)
  1. WELLBUTRIN XL [Suspect]

REACTIONS (3)
  - CONDITION AGGRAVATED [None]
  - SOMNOLENCE [None]
  - DEPRESSION [None]
